FAERS Safety Report 14776697 (Version 1)
Quarter: 2018Q2

REPORT INFORMATION
  Report Type: Spontaneous
  Country: FR (occurrence: FR)
  Receive Date: 20180419
  Receipt Date: 20180419
  Transmission Date: 20180711
  Serious: Yes (Other)
  Sender: FDA-Public Use
  Company Number: FR-MERCK KGAA-2045999

PATIENT
  Sex: Female

DRUGS (1)
  1. NOVOTHYROX [Suspect]
     Active Substance: LEVOTHYROXINE SODIUM
     Indication: POST PROCEDURAL HYPOTHYROIDISM

REACTIONS (16)
  - Myalgia [None]
  - Mood altered [None]
  - Depressed mood [None]
  - Social avoidant behaviour [None]
  - Suicidal ideation [None]
  - Fatigue [None]
  - Loss of personal independence in daily activities [None]
  - Bipolar disorder [None]
  - Muscle spasms [None]
  - Negative thoughts [None]
  - Depression [None]
  - Gait disturbance [None]
  - Migraine [None]
  - Obesity [None]
  - Anger [None]
  - Sleep apnoea syndrome [None]
